FAERS Safety Report 16395735 (Version 4)
Quarter: 2019Q3

REPORT INFORMATION
  Report Type: Spontaneous
  Country: NZ (occurrence: NZ)
  Receive Date: 20190605
  Receipt Date: 20190807
  Transmission Date: 20191004
  Serious: Yes (Other)
  Sender: FDA-Public Use
  Company Number: NZ-BAYER-2019-109397

PATIENT
  Age: 51 Year
  Sex: Female

DRUGS (2)
  1. MIRENA [Suspect]
     Active Substance: LEVONORGESTREL
     Indication: MENORRHAGIA
     Dosage: 20 MCG/24HR, CONT
     Route: 015
     Dates: start: 2017, end: 201810
  2. MIRENA [Suspect]
     Active Substance: LEVONORGESTREL
     Indication: MENORRHAGIA
     Dosage: 20 MCG/24HR, CONT
     Route: 015

REACTIONS (26)
  - Depression [Recovering/Resolving]
  - Acne [None]
  - Suicidal ideation [Not Recovered/Not Resolved]
  - Genital haemorrhage [Recovered/Resolved]
  - Nausea [Recovered/Resolved]
  - Feeling abnormal [Not Recovered/Not Resolved]
  - Hot flush [None]
  - Sleep disorder [None]
  - Polymenorrhoea [None]
  - Fear [None]
  - Emotional disorder [None]
  - Device expulsion [Recovered/Resolved]
  - Insomnia [Not Recovered/Not Resolved]
  - Middle insomnia [None]
  - Post-traumatic stress disorder [Not Recovered/Not Resolved]
  - Palpitations [None]
  - Procedural pain [None]
  - Anxiety [None]
  - Emotional distress [None]
  - Feeling of despair [None]
  - Genital haemorrhage [Recovered/Resolved]
  - Complication of device insertion [None]
  - Weight increased [Recovering/Resolving]
  - Abdominal distension [Recovering/Resolving]
  - Headache [Recovering/Resolving]
  - Patient-device incompatibility [None]

NARRATIVE: CASE EVENT DATE: 2017
